FAERS Safety Report 7605402 (Version 3)
Quarter: 2013Q2

REPORT INFORMATION
  Report Type: Spontaneous
  Country: BE (occurrence: None)
  Receive Date: 20100913
  Receipt Date: 20130610
  Transmission Date: 20140414
  Serious: Yes (Hospitalization)
  Sender: FDA-Public Use
  Company Number: 0213322

PATIENT
  Sex: 0

DRUGS (1)
  1. TACHOSIL [Suspect]
     Indication: SUTURE INSERTION
     Dosage: 1 DOSAGE FORMS

REACTIONS (1)
  - ADHESION [None]
